FAERS Safety Report 4941646-1 (Version None)
Quarter: 2006Q1

REPORT INFORMATION
  Report Type: 
  Country: None (occurrence: None)
  Receive Date: 20060313
  Receipt Date: 20050721
  Transmission Date: 20060701
  Serious: Yes (Other)
  Sender: FDA-Public Use
  Company Number: BR-ROCHE-411692

PATIENT
  Sex: Female
  Weight: 2.9 kg

DRUGS (3)
  1. ROACUTAN [Suspect]
     Indication: ACNE
     Dates: start: 20050315, end: 20050515
  2. ROACUTAN [Suspect]
     Dosage: RESTARTED 40 DAYS LATER.
     Dates: start: 20050615
  3. AMARYL [Concomitant]

REACTIONS (3)
  - NO ADVERSE EFFECT [None]
  - NORMAL NEWBORN [None]
  - TRANSMISSION OF DRUG VIA SEMEN [None]
